FAERS Safety Report 10893896 (Version 2)
Quarter: 2015Q2

REPORT INFORMATION
  Report Type: Spontaneous
  Country: US (occurrence: US)
  Receive Date: 20150306
  Receipt Date: 20150406
  Transmission Date: 20150821
  Serious: Yes (Hospitalization)
  Sender: FDA-Public Use
  Company Number: US-PFIZER INC-2015077978

PATIENT
  Age: 68 Year
  Sex: Male

DRUGS (1)
  1. BOSULIF [Suspect]
     Active Substance: BOSUTINIB MONOHYDRATE
     Indication: CHRONIC MYELOID LEUKAEMIA
     Dosage: 500 MG, DAILY
     Route: 048
     Dates: start: 20150207, end: 20150223

REACTIONS (7)
  - Hyponatraemia [Unknown]
  - Pyrexia [Unknown]
  - Pain [Unknown]
  - Malaise [Unknown]
  - Pleural effusion [Recovering/Resolving]
  - Acute kidney injury [Unknown]
  - Fatigue [Unknown]

NARRATIVE: CASE EVENT DATE: 201502
